FAERS Safety Report 19213169 (Version 2)
Quarter: 2021Q2

REPORT INFORMATION
  Report Type: Report from Study
  Country: GB (occurrence: GB)
  Receive Date: 20210504
  Receipt Date: 20210603
  Transmission Date: 20210717
  Serious: Yes (Hospitalization, Other)
  Sender: FDA-Public Use
  Company Number: GB-PFIZER INC-2020511865

PATIENT
  Age: 60 Year
  Sex: Female
  Weight: 50.6 kg

DRUGS (5)
  1. CETUXIMAB. [Suspect]
     Active Substance: CETUXIMAB
     Indication: COLORECTAL CANCER METASTATIC
     Dosage: 800 MG, ONCE WEEKLY THEN CHANGE TO ONCE EVERY 2 WEEKS FROM 30APR2020
     Route: 042
     Dates: start: 20180524
  2. BINIMETINIB [Suspect]
     Active Substance: BINIMETINIB
     Indication: COLORECTAL CANCER METASTATIC
     Dosage: 15 MG, 2X/DAY
     Route: 048
     Dates: start: 20180524, end: 20190117
  3. ENCORAFENIB [Suspect]
     Active Substance: ENCORAFENIB
     Indication: COLORECTAL CANCER METASTATIC
     Dosage: 300 MG, DAILY
     Route: 048
     Dates: start: 20180524
  4. CHLORPHENAMINE [Concomitant]
     Active Substance: CHLORPHENIRAMINE MALEATE
     Indication: PREMEDICATION
     Dosage: 10 MG, ONE TIME ONLY (OD)
     Route: 042
     Dates: start: 20201210, end: 20201210
  5. DEXAMETHASONE. [Concomitant]
     Active Substance: DEXAMETHASONE
     Indication: PREMEDICATION
     Dosage: 8 MG, ONE TIME ONLY (OD)
     Route: 042
     Dates: start: 20201210, end: 20201210

REACTIONS (1)
  - Urinary tract obstruction [Recovered/Resolved]

NARRATIVE: CASE EVENT DATE: 20201223
